FAERS Safety Report 19149389 (Version 7)
Quarter: 2021Q2

REPORT INFORMATION
  Report Type: Report from Study
  Country: US (occurrence: US)
  Receive Date: 20210416
  Receipt Date: 20210621
  Transmission Date: 20210717
  Serious: Yes (Hospitalization)
  Sender: FDA-Public Use
  Company Number: US-SEATTLE GENETICS-2021SGN01878

PATIENT
  Age: 44 Year
  Sex: Female

DRUGS (2)
  1. TUCATINIB [Suspect]
     Active Substance: TUCATINIB
     Indication: BREAST CANCER FEMALE
     Dosage: UNKNOWN
  2. XELODA [Suspect]
     Active Substance: CAPECITABINE
     Indication: PRODUCT USED FOR UNKNOWN INDICATION

REACTIONS (28)
  - Hyperkeratosis [Unknown]
  - Central nervous system lesion [Unknown]
  - Abdominal pain [Unknown]
  - Neuropathy peripheral [Unknown]
  - Dysphonia [Unknown]
  - Magnetic resonance imaging head abnormal [Unknown]
  - Cardiac ventricular disorder [Unknown]
  - Pleural effusion [Unknown]
  - Palmar-plantar erythrodysaesthesia syndrome [Unknown]
  - Blood bilirubin increased [Unknown]
  - Erythema [Unknown]
  - Joint swelling [Unknown]
  - Nasopharyngitis [Unknown]
  - Weight increased [Unknown]
  - Creatinine renal clearance increased [Unknown]
  - Neoplasm [Unknown]
  - Lung operation [Unknown]
  - Tenderness [Unknown]
  - Red blood cell count decreased [Unknown]
  - Pain [Unknown]
  - Balance disorder [Unknown]
  - Back pain [Unknown]
  - Oedema peripheral [Unknown]
  - Platelet count decreased [Unknown]
  - Aspartate aminotransferase increased [Unknown]
  - Chest tube insertion [Unknown]
  - Hepatic enzyme increased [Unknown]
  - Diarrhoea [Unknown]

NARRATIVE: CASE EVENT DATE: 20210401
